FAERS Safety Report 9999172 (Version 1)
Quarter: 2014Q1

REPORT INFORMATION
  Report Type: Spontaneous
  Country: US (occurrence: None)
  Receive Date: 20140311
  Receipt Date: 20140311
  Transmission Date: 20141002
  Serious: Yes (Disabling)
  Sender: FDA-Public Use
  Company Number: None

PATIENT
  Age: 89 Year
  Sex: Female
  Weight: 63.5 kg

DRUGS (2)
  1. AMLODIPINE, 2.5 MG, CAMBER [Suspect]
     Indication: HYPERTENSION
     Dosage: TAKEN BY MOUTH
     Dates: start: 20140215, end: 20140307
  2. AMLODIPINE, 2.5 MG, CAMBER [Suspect]
     Dosage: TAKEN BY MOUTH
     Dates: start: 20140215, end: 20140307

REACTIONS (4)
  - Palpitations [None]
  - Pain in extremity [None]
  - Arthralgia [None]
  - Tendonitis [None]
